FAERS Safety Report 16946980 (Version 3)
Quarter: 2022Q2

REPORT INFORMATION
  Report Type: Spontaneous
  Country: US (occurrence: US)
  Receive Date: 20191022
  Receipt Date: 20220629
  Transmission Date: 20220721
  Serious: Yes (Other)
  Sender: FDA-Public Use
  Company Number: US-GSKCCFUS-CASE-00448739

PATIENT

DRUGS (3)
  1. LAMOTRIGINE [Suspect]
     Active Substance: LAMOTRIGINE
     Indication: Seizure
     Dosage: UNK
     Route: 065
     Dates: start: 201901
  2. LAMICTAL [Suspect]
     Active Substance: LAMOTRIGINE
     Indication: Seizure
     Dosage: 500 MG, QD
     Route: 065
  3. NEUROTIN [Suspect]
     Active Substance: GABAPENTIN
     Indication: Pain
     Dosage: UNK

REACTIONS (12)
  - Suicidal ideation [Unknown]
  - Seizure [Recovered/Resolved]
  - Aura [Unknown]
  - Gastrointestinal disorder [Unknown]
  - Mood altered [Unknown]
  - Fear [Unknown]
  - Illness [Unknown]
  - Speech disorder [Unknown]
  - Auditory disorder [Unknown]
  - Feeling abnormal [Unknown]
  - Gait disturbance [Unknown]
  - Product substitution issue [Unknown]
